FAERS Safety Report 18026641 (Version 1)
Quarter: 2020Q3

REPORT INFORMATION
  Report Type: Spontaneous
  Country: US (occurrence: US)
  Receive Date: 20200715
  Receipt Date: 20200715
  Transmission Date: 20201103
  Serious: Yes (Other)
  Sender: FDA-Public Use
  Company Number: US-GILEAD-2020-0470338

PATIENT
  Age: 67 Year
  Sex: Female
  Weight: 68.5 kg

DRUGS (36)
  1. ACETAMINOPHEN. [Concomitant]
     Active Substance: ACETAMINOPHEN
     Dosage: 650 MG
     Route: 048
     Dates: start: 20200513, end: 20200513
  2. ACETAMINOPHEN. [Concomitant]
     Active Substance: ACETAMINOPHEN
     Dosage: 975 MG
     Route: 048
     Dates: start: 20200513, end: 20200513
  3. ACETAMINOPHEN. [Concomitant]
     Active Substance: ACETAMINOPHEN
     Dosage: 650 MG
     Route: 050
     Dates: start: 20200517, end: 20200517
  4. ALBUTEROL HFA [Concomitant]
     Active Substance: ALBUTEROL SULFATE
  5. FUROSEMIDE. [Concomitant]
     Active Substance: FUROSEMIDE
  6. NOREPINEPHRINE. [Concomitant]
     Active Substance: NOREPINEPHRINE
  7. PREGABALIN. [Concomitant]
     Active Substance: PREGABALIN
  8. SUCCINYLCHOLINE [SUXAMETHONIUM] [Concomitant]
     Active Substance: SUCCINYLCHOLINE
  9. DULOXETINE. [Concomitant]
     Active Substance: DULOXETINE
  10. INSULIN [Concomitant]
     Active Substance: INSULIN NOS
  11. LORAZEPAM. [Concomitant]
     Active Substance: LORAZEPAM
  12. ONDANSETRON [Concomitant]
     Active Substance: ONDANSETRON
  13. REMDESIVIR. [Suspect]
     Active Substance: REMDESIVIR
     Dosage: 100 MG, QD
     Route: 042
     Dates: start: 20200515, end: 20200518
  14. FENTANYL. [Concomitant]
     Active Substance: FENTANYL
  15. OXYCODONE [Concomitant]
     Active Substance: OXYCODONE
  16. CEFTRIAXONE. [Concomitant]
     Active Substance: CEFTRIAXONE
  17. ACETAMINOPHEN. [Concomitant]
     Active Substance: ACETAMINOPHEN
     Dosage: 650 MG
     Route: 050
     Dates: start: 20200516, end: 20200516
  18. DOCUSATE [Concomitant]
     Active Substance: DOCUSATE
  19. FAMOTIDINE. [Concomitant]
     Active Substance: FAMOTIDINE
  20. HYDROXYZINE [Concomitant]
     Active Substance: HYDROXYZINE HYDROCHLORIDE
  21. POLYETHYLENE GLYCOL 3350. [Concomitant]
     Active Substance: POLYETHYLENE GLYCOL 3350
  22. ACETAMINOPHEN. [Concomitant]
     Active Substance: ACETAMINOPHEN
     Dosage: 975 MG
     Route: 050
     Dates: start: 20200515, end: 20200515
  23. ACETAMINOPHEN. [Concomitant]
     Active Substance: ACETAMINOPHEN
     Dosage: 650 MG
     Route: 050
     Dates: start: 20200517, end: 20200517
  24. CHLORHEXIDINE [Concomitant]
     Active Substance: CHLORHEXIDINE
  25. ETOMIDATE. [Concomitant]
     Active Substance: ETOMIDATE
  26. HEPARIN [Concomitant]
     Active Substance: HEPARIN SODIUM
  27. MIDAZOLAM. [Concomitant]
     Active Substance: MIDAZOLAM
  28. SENNA S [Concomitant]
     Active Substance: DOCUSATE SODIUM\SENNA LEAF
  29. REMDESIVIR. [Suspect]
     Active Substance: REMDESIVIR
     Indication: COVID-19
     Dosage: 200 MG, QD
     Route: 042
     Dates: start: 20200514, end: 20200514
  30. ACETAMINOPHEN. [Concomitant]
     Active Substance: ACETAMINOPHEN
     Dosage: 650 MG
     Route: 050
     Dates: start: 20200518, end: 20200518
  31. AZITHROMYCIN ANHYDROUS. [Concomitant]
     Active Substance: AZITHROMYCIN ANHYDROUS
  32. DEXMEDETOMIDINE. [Concomitant]
     Active Substance: DEXMEDETOMIDINE
  33. ENOXAPARIN [Concomitant]
     Active Substance: ENOXAPARIN
  34. HALOPERIDOL. [Concomitant]
     Active Substance: HALOPERIDOL
  35. PROPOFOL. [Concomitant]
     Active Substance: PROPOFOL
  36. ROCURONIUM [Concomitant]
     Active Substance: ROCURONIUM BROMIDE

REACTIONS (8)
  - Acute kidney injury [Unknown]
  - Respiratory disorder [Unknown]
  - Blood bilirubin increased [Unknown]
  - Jugular vein thrombosis [Unknown]
  - Acute respiratory distress syndrome [Unknown]
  - Pneumonia [Unknown]
  - Blood creatinine increased [Unknown]
  - Transaminases increased [Unknown]

NARRATIVE: CASE EVENT DATE: 20200519
